FAERS Safety Report 6134300-4 (Version None)
Quarter: 2009Q1

REPORT INFORMATION
  Report Type: 
  Country: None (occurrence: None)
  Receive Date: 20090325
  Receipt Date: 20090310
  Transmission Date: 20090719
  Serious: Yes (Hospitalization, Other)
  Sender: FDA-Public Use
  Company Number: 2009S1004419

PATIENT
  Age: 70 Year
  Sex: Female

DRUGS (10)
  1. CIPROFLOXACIN [Suspect]
     Indication: ABSCESS
     Dosage: 250 MG;FILM-COATED TABLET;ORAL;TWICE A DAY
     Route: 048
     Dates: start: 20080110, end: 20080124
  2. ALENDRONIC ACID (ALENDRONIC ACID) [Concomitant]
  3. ACETYLSALICYLIC ACID SRT [Concomitant]
  4. CALCIUM ACETATE (CALCIUM ACETATE) [Concomitant]
  5. DIGITOXIN INJ [Concomitant]
  6. DREISAVIT N (DREISAVIT N) [Concomitant]
  7. HUMAN PROTAPHANE (INSULIN HUMAN INJECTION, ISOPHANE) [Concomitant]
  8. METOHEXAL (METOPROLOL TARTRATE) [Concomitant]
  9. SODIUM POLYSTYRENE SULFONATE [Concomitant]
  10. TRAMADOL HCL [Concomitant]

REACTIONS (2)
  - DIARRHOEA HAEMORRHAGIC [None]
  - ENTERITIS [None]
